FAERS Safety Report 22211437 (Version 1)
Quarter: 2023Q2

REPORT INFORMATION
  Report Type: Spontaneous
  Country: US (occurrence: US)
  Receive Date: 20230414
  Receipt Date: 20230414
  Transmission Date: 20230722
  Serious: Yes (Other)
  Sender: FDA-Public Use
  Company Number: US-002147023-NVSC2023US083240

PATIENT
  Age: 59 Year
  Sex: Female

DRUGS (10)
  1. AZITHROMYCIN [Suspect]
     Active Substance: AZITHROMYCIN
     Indication: Sputum culture positive
     Dosage: UNK, QD
     Route: 065
  2. AZITHROMYCIN [Suspect]
     Active Substance: AZITHROMYCIN
     Dosage: UNK, TIW
     Route: 065
     Dates: start: 202205
  3. AZITHROMYCIN [Suspect]
     Active Substance: AZITHROMYCIN
     Dosage: UNK, QD
     Route: 065
     Dates: start: 202210
  4. RIFAMPIN [Suspect]
     Active Substance: RIFAMPIN
     Indication: Sputum culture positive
     Dosage: UNK, QD
     Route: 065
  5. RIFAMPIN [Suspect]
     Active Substance: RIFAMPIN
     Dosage: UNK, TIW
     Route: 065
     Dates: start: 202205
  6. RIFAMPIN [Suspect]
     Active Substance: RIFAMPIN
     Dosage: UNK, QD
     Route: 065
     Dates: start: 202210
  7. AMIKACIN [Suspect]
     Active Substance: AMIKACIN
     Indication: Product used for unknown indication
     Dosage: UNK
  8. ETHAMBUTOL [Suspect]
     Active Substance: ETHAMBUTOL HYDROCHLORIDE
     Indication: Sputum culture positive
     Dosage: UNK, QD
     Route: 065
  9. ETHAMBUTOL [Suspect]
     Active Substance: ETHAMBUTOL HYDROCHLORIDE
     Dosage: UNK, TIW
     Route: 065
     Dates: start: 202205
  10. ETHAMBUTOL [Suspect]
     Active Substance: ETHAMBUTOL HYDROCHLORIDE
     Dosage: UNK, QD
     Route: 065
     Dates: start: 202210

REACTIONS (5)
  - Mycobacterium avium complex infection [Unknown]
  - Nodule [Unknown]
  - Granuloma [Unknown]
  - Chronic obstructive pulmonary disease [Unknown]
  - Drug intolerance [Unknown]

NARRATIVE: CASE EVENT DATE: 20180101
